FAERS Safety Report 23304404 (Version 1)
Quarter: 2023Q4

REPORT INFORMATION
  Report Type: Report from Study
  Country: IT (occurrence: IT)
  Receive Date: 20231218
  Receipt Date: 20231218
  Transmission Date: 20240110
  Serious: Yes (Other)
  Sender: FDA-Public Use
  Company Number: None

PATIENT
  Age: 65 Year

DRUGS (9)
  1. CAPECITABINE [Suspect]
     Active Substance: CAPECITABINE
     Indication: Adenocarcinoma of colon
     Dosage: DOSAGE TEXT: DOSAGE: 3000, UNIT OF MEASUREMENT: MILLIGRAMS, ADMINISTRATION FREQUENCY: DAILY, ROUT...
     Route: 048
     Dates: start: 20230906, end: 20230919
  2. FLUOROURACIL [Concomitant]
     Active Substance: FLUOROURACIL
     Indication: Adenocarcinoma of colon
     Dosage: DOSAGE TEXT: DOSAGE: 400, UNIT OF MEASUREMENT: MILLIGRAMS, FOR: PER SQM OF BODY SURFACE, ROUTE OF...
     Route: 040
     Dates: start: 20230905
  3. FLUOROURACIL [Concomitant]
     Active Substance: FLUOROURACIL
     Indication: Adenocarcinoma of colon
     Dosage: DOSAGE: 2400?UNIT OF MEASUREMENT: MILLIGRAMS?FOR: PER SQM OF BODY SURFACE?ROUTE OF ADMINISTRATION...
     Route: 042
     Dates: start: 20230905
  4. FOLINA [Concomitant]
     Indication: Product used for unknown indication
     Dosage: DOSAGE TEXT: UNKNOWN: 5 MG
  5. OXALIPLATIN [Concomitant]
     Active Substance: OXALIPLATIN
     Indication: Adenocarcinoma of colon
     Dosage: DOSAGE TEXT: DOSAGE: 85, UNIT OF MEASUREMENT: MILLIGRAMS, FOR: PER SQM OF BODY SURFACE, ROUTE OF ...
     Route: 042
     Dates: start: 20230905
  6. FERROUS SULFATE [Concomitant]
     Active Substance: FERROUS SULFATE
     Indication: Product used for unknown indication
  7. FERROUS SULFATE [Concomitant]
     Active Substance: FERROUS SULFATE
     Indication: Product used for unknown indication
  8. FERROUS SULFATE [Concomitant]
     Active Substance: FERROUS SULFATE
     Indication: Product used for unknown indication
  9. ELIQUIS [Concomitant]
     Active Substance: APIXABAN
     Indication: Product used for unknown indication
     Dosage: DOSAGE TEXT: UNIT DOSE : 5 MG

REACTIONS (1)
  - Gastrointestinal toxicity [Recovered/Resolved]

NARRATIVE: CASE EVENT DATE: 20230912
